FAERS Safety Report 16539582 (Version 1)
Quarter: 2019Q3

REPORT INFORMATION
  Report Type: Spontaneous
  Country: US (occurrence: US)
  Receive Date: 20190524
  Receipt Date: 20190524
  Transmission Date: 20191004
  Serious: Yes (Hospitalization)
  Sender: FDA-Public Use
  Company Number: None

PATIENT
  Age: 68 Year
  Sex: Female
  Weight: 82.9 kg

DRUGS (3)
  1. GEMCITABINE HYDROCHLORIDE. [Suspect]
     Active Substance: GEMCITABINE HYDROCHLORIDE
     Dates: end: 20190506
  2. PACLITAXEL PROTEIN-BOUND PARTICLES (ALBUMIN-BOUND) [Suspect]
     Active Substance: PACLITAXEL
     Dates: end: 20190506
  3. CISPLATIN. [Suspect]
     Active Substance: CISPLATIN
     Dates: end: 20190506

REACTIONS (9)
  - Inflammation [None]
  - Hypersomnia [None]
  - Portal vein occlusion [None]
  - Tumour thrombosis [None]
  - Post procedural complication [None]
  - Pyrexia [None]
  - Malaise [None]
  - Chills [None]
  - Fatigue [None]

NARRATIVE: CASE EVENT DATE: 20190515
